FAERS Safety Report 5402761-1 (Version None)
Quarter: 2007Q3

REPORT INFORMATION
  Report Type: 
  Country: None (occurrence: None)
  Receive Date: 20070727
  Receipt Date: 20070713
  Transmission Date: 20080115
  Serious: Yes (Hospitalization, Other)
  Sender: FDA-Public Use
  Company Number: 158858ISR

PATIENT
  Sex: Male

DRUGS (7)
  1. AMINOPHYLLINE [Suspect]
     Route: 064
  2. AMOXICILLIN [Suspect]
     Route: 064
  3. CLARITHROMYCIN [Suspect]
     Route: 064
  4. HYDROCORTISONE [Suspect]
     Route: 064
  5. SALBUTAMOL [Suspect]
     Dosage: (5 MG)
     Route: 064
  6. IPRATROPIUM BROMIDE [Suspect]
  7. MAGNESIUM SULFATE [Concomitant]

REACTIONS (4)
  - CAESAREAN SECTION [None]
  - DRUG EXPOSURE DURING PREGNANCY [None]
  - FOETAL DISTRESS SYNDROME [None]
  - TACHYCARDIA FOETAL [None]
